FAERS Safety Report 10902233 (Version 3)
Quarter: 2015Q3

REPORT INFORMATION
  Report Type: Spontaneous
  Country: PL (occurrence: PL)
  Receive Date: 20150310
  Receipt Date: 20150724
  Transmission Date: 20151125
  Serious: Yes (Other)
  Sender: FDA-Public Use
  Company Number: PL-PFIZER INC-2004240917PL

PATIENT
  Age: 42 Year
  Sex: Male

DRUGS (4)
  1. METOPROLOL [Concomitant]
     Active Substance: METOPROLOL
     Indication: MITRAL VALVE PROLAPSE
     Dosage: UNK
     Route: 048
  2. ZYRTEC [Suspect]
     Active Substance: CETIRIZINE HYDROCHLORIDE
     Indication: RHINITIS ALLERGIC
     Route: 048
  3. PANTOPRAZOLE [Suspect]
     Active Substance: PANTOPRAZOLE SODIUM
     Indication: GASTROOESOPHAGEAL REFLUX DISEASE
     Dosage: 40 MG, 1X/DAY
     Route: 048
     Dates: start: 200402
  4. AIROL [Concomitant]
     Dosage: UNK
     Route: 065

REACTIONS (5)
  - Electrocardiogram QRS complex shortened [Unknown]
  - Electrocardiogram repolarisation abnormality [Recovered/Resolved]
  - Electrocardiogram ST-T segment abnormal [Recovered/Resolved]
  - Electrocardiogram ST segment elevation [Recovered/Resolved]
  - Electrocardiogram QT prolonged [Recovered/Resolved]

NARRATIVE: CASE EVENT DATE: 200402
